FAERS Safety Report 11925846 (Version 1)
Quarter: 2016Q1

REPORT INFORMATION
  Report Type: Spontaneous
  Country: TW (occurrence: TW)
  Receive Date: 20160118
  Receipt Date: 20160118
  Transmission Date: 20160526
  Serious: Yes (Other)
  Sender: FDA-Public Use
  Company Number: TW-AMGEN-TWNSP2016005117

PATIENT
  Age: 17 Year
  Sex: Male

DRUGS (1)
  1. ENBREL [Suspect]
     Active Substance: ETANERCEPT
     Indication: JUVENILE IDIOPATHIC ARTHRITIS
     Dosage: 25 MG, BIW
     Route: 058
     Dates: start: 20130504, end: 20150113

REACTIONS (3)
  - Juvenile idiopathic arthritis [Unknown]
  - HLA marker study positive [Unknown]
  - Condition aggravated [Unknown]
